FAERS Safety Report 7111525-2 (Version None)
Quarter: 2010Q4

REPORT INFORMATION
  Report Type: 
  Country: None (occurrence: None)
  Receive Date: 20101118
  Receipt Date: 20101028
  Transmission Date: 20110411
  Serious: Yes (Disabling)
  Sender: FDA-Public Use
  Company Number: DE-ROCHE-742431

PATIENT
  Sex: Male
  Weight: 72 kg

DRUGS (3)
  1. PEGINTERFERON ALFA-2A [Suspect]
     Indication: HEPATITIS C
     Route: 065
     Dates: start: 20100730, end: 20101015
  2. RIBAVIRIN [Suspect]
     Indication: HEPATITIS C
     Route: 065
     Dates: start: 20100730
  3. PARACETAMOL [Concomitant]
     Dates: start: 20100730

REACTIONS (2)
  - DEPRESSION [None]
  - SCHIZOPHRENIA [None]
